FAERS Safety Report 4550983-4 (Version None)
Quarter: 2005Q1

REPORT INFORMATION
  Report Type: 
  Country: None (occurrence: None)
  Receive Date: 20050113
  Receipt Date: 20050107
  Transmission Date: 20050727
  Serious: Yes (Other)
  Sender: FDA-Public Use
  Company Number: PHBS2005JP00728

PATIENT
  Age: 60 Year
  Sex: Female

DRUGS (3)
  1. SERENACE [Concomitant]
     Indication: SCHIZOPHRENIA
     Dosage: 3 MG/D
     Route: 048
     Dates: start: 20000101
  2. MELLERIL [Concomitant]
     Indication: SCHIZOPHRENIA
     Dosage: 30 MG/D
     Route: 048
     Dates: start: 20000101
  3. LAMISIL [Suspect]
     Indication: FUNGAL SKIN INFECTION
     Dosage: 125 MG, QD
     Route: 048
     Dates: start: 20041221, end: 20050105

REACTIONS (3)
  - BLOOD CREATINE PHOSPHOKINASE INCREASED [None]
  - MALAISE [None]
  - RHABDOMYOLYSIS [None]
